FAERS Safety Report 7709840-4 (Version None)
Quarter: 2011Q3

REPORT INFORMATION
  Report Type: 
  Country: None (occurrence: None)
  Receive Date: 20110825
  Receipt Date: 20110818
  Transmission Date: 20111222
  Serious: Yes (Death, Life-Threatening, Hospitalization, Disabling, Other)
  Sender: FDA-Public Use
  Company Number: US-MERCK-1106USA01949

PATIENT
  Age: 60 Year
  Sex: Female
  Weight: 53 kg

DRUGS (1)
  1. INVANZ [Suspect]
     Indication: PROPHYLAXIS
     Route: 042
     Dates: start: 20101216

REACTIONS (2)
  - SEPSIS [None]
  - RENAL FAILURE ACUTE [None]
